FAERS Safety Report 4686406-4 (Version None)
Quarter: 2005Q2

REPORT INFORMATION
  Report Type: 
  Country: None (occurrence: None)
  Receive Date: 20050609
  Receipt Date: 20050422
  Transmission Date: 20051028
  Serious: Yes (Hospitalization)
  Sender: FDA-Public Use
  Company Number: US-ROCHE-405636

PATIENT

DRUGS (1)
  1. VALGANCICLOVIR [Suspect]
     Route: 048

REACTIONS (1)
  - POST PROCEDURAL CELLULITIS [None]
